FAERS Safety Report 8132686-2 (Version None)
Quarter: 2012Q1

REPORT INFORMATION
  Report Type: 
  Country: None (occurrence: None)
  Receive Date: 20120213
  Receipt Date: 20120209
  Transmission Date: 20120608
  Serious: No
  Sender: FDA-Public Use
  Company Number: US-PFIZER INC-2012036392

PATIENT
  Sex: Female
  Weight: 72.562 kg

DRUGS (8)
  1. LISINOPRIL [Concomitant]
     Indication: HYPERTENSION
     Dosage: 20 MG, DAILY
  2. POTASSIUM [Concomitant]
     Dosage: UNK
  3. ADVIL PM [Suspect]
     Indication: INSOMNIA
     Dosage: UNK
     Dates: start: 20120201, end: 20120201
  4. ICAPS [Concomitant]
     Indication: PROPHYLAXIS
     Dosage: UNK
  5. TEMAZEPAM [Suspect]
     Indication: INSOMNIA
     Dosage: 30 MG, DAILY
     Dates: end: 20111124
  6. HYDROCHLOROTHIAZIDE [Concomitant]
     Dosage: 25 MG, DAILY
  7. ADVIL PM [Suspect]
     Dosage: UNK
     Dates: start: 20120201, end: 20120201
  8. AMLODIPINE [Concomitant]
     Indication: HYPERTENSION
     Dosage: 5 MG, DAILY

REACTIONS (2)
  - OVERDOSE [None]
  - DRUG INEFFECTIVE [None]
